FAERS Safety Report 16391646 (Version 1)
Quarter: 2019Q2

REPORT INFORMATION
  Report Type: Spontaneous
  Country: US (occurrence: US)
  Receive Date: 20190605
  Receipt Date: 20190605
  Transmission Date: 20190711
  Serious: No
  Sender: FDA-Public Use
  Company Number: US-ROCHE-2189741

PATIENT
  Age: 45 Year
  Sex: Female
  Weight: 106.69 kg

DRUGS (5)
  1. OCREVUS [Suspect]
     Active Substance: OCRELIZUMAB
     Indication: RELAPSING-REMITTING MULTIPLE SCLEROSIS
     Route: 042
     Dates: start: 20180410
  2. OCREVUS [Suspect]
     Active Substance: OCRELIZUMAB
     Route: 042
     Dates: start: 20171020
  3. OCREVUS [Suspect]
     Active Substance: OCRELIZUMAB
     Route: 042
     Dates: start: 20171102
  4. BENADRYL [Concomitant]
     Active Substance: DIPHENHYDRAMINE HYDROCHLORIDE
     Dosage: UNKNOWN
     Route: 065
     Dates: start: 20171020
  5. BENADRYL [Concomitant]
     Active Substance: DIPHENHYDRAMINE HYDROCHLORIDE
     Dosage: RAISED DOSAGE DURING OCREVUS ADMINISTRATION ;ONGOING: UNKNOWN
     Route: 065
     Dates: start: 20171020

REACTIONS (5)
  - Seasonal allergy [Not Recovered/Not Resolved]
  - Sinus disorder [Not Recovered/Not Resolved]
  - Ear discomfort [Not Recovered/Not Resolved]
  - Weight increased [Unknown]
  - Oropharyngeal discomfort [Not Recovered/Not Resolved]

NARRATIVE: CASE EVENT DATE: 20171020
